FAERS Safety Report 8484501-5 (Version None)
Quarter: 2012Q3

REPORT INFORMATION
  Report Type: 
  Country: None (occurrence: None)
  Receive Date: 20120703
  Receipt Date: 20120629
  Transmission Date: 20120928
  Serious: Yes (Other)
  Sender: FDA-Public Use
  Company Number: US-PFIZER INC-2012157054

PATIENT
  Sex: Female
  Weight: 59 kg

DRUGS (3)
  1. FLEXERIL [Concomitant]
     Indication: MUSCLE RELAXANT THERAPY
     Dosage: 10 MG, DAILY
  2. CHANTIX [Suspect]
     Indication: SMOKING CESSATION THERAPY
     Dosage: 0.5 MG, DAILY
     Route: 048
  3. CYMBALTA [Concomitant]
     Indication: BONE DISORDER
     Dosage: 20 MG, DAILY

REACTIONS (1)
  - SKELETAL INJURY [None]
